FAERS Safety Report 25335914 (Version 2)
Quarter: 2025Q2

REPORT INFORMATION
  Report Type: Spontaneous
  Country: US (occurrence: US)
  Receive Date: 20250520
  Receipt Date: 20250622
  Transmission Date: 20250716
  Serious: No
  Sender: BOEHRINGER INGELHEIM
  Company Number: US-Komodo Health-a23aa000007fLR3AAM

PATIENT
  Sex: Male

DRUGS (1)
  1. CYLTEZO [Suspect]
     Active Substance: ADALIMUMAB-ADBM
     Indication: Psoriatic arthropathy

REACTIONS (2)
  - Overdose [Unknown]
  - Product delivery mechanism issue [Unknown]
